FAERS Safety Report 4284665-3 (Version None)
Quarter: 2004Q1

REPORT INFORMATION
  Report Type: 
  Country: None (occurrence: None)
  Receive Date: 20040130
  Receipt Date: 20040113
  Transmission Date: 20041129
  Serious: Yes (Death)
  Sender: FDA-Public Use
  Company Number: US_040199882

PATIENT
  Age: 53 Year
  Sex: Male

DRUGS (5)
  1. VINCRISTINE SULFATE [Suspect]
     Indication: T-CELL LYMPHOMA
     Dosage: 1.4 MG/M2 OTHER
     Route: 050
  2. CYCLOPHOSPHAMIDE [Concomitant]
  3. DOXORUBICIN HCL [Concomitant]
  4. PREDNISONE [Concomitant]
  5. RADIOTHERAPY [Concomitant]

REACTIONS (9)
  - ALEUKAEMIC LEUKAEMIA [None]
  - BIOPSY SKIN ABNORMAL [None]
  - BRONCHOPULMONARY ASPERGILLOSIS [None]
  - LEUKAEMIA CUTIS [None]
  - LEUKAEMIA RECURRENT [None]
  - LYMPHADENOPATHY [None]
  - MALIGNANT NEOPLASM PROGRESSION [None]
  - RASH PRURITIC [None]
  - SKIN NODULE [None]
